FAERS Safety Report 20886191 (Version 2)
Quarter: 2022Q2

REPORT INFORMATION
  Report Type: Spontaneous
  Country: JP (occurrence: JP)
  Receive Date: 20220527
  Receipt Date: 20220624
  Transmission Date: 20220721
  Serious: Yes (Death, Hospitalization, Other)
  Sender: FDA-Public Use
  Company Number: JP-ABBVIE-22K-087-4413678-00

PATIENT
  Age: 79 Year
  Sex: Male

DRUGS (4)
  1. VENCLEXTA [Suspect]
     Active Substance: VENETOCLAX
     Indication: Acute myeloid leukaemia
     Route: 048
     Dates: start: 20210720, end: 20210813
  2. AZACITIDINE [Concomitant]
     Active Substance: AZACITIDINE
     Indication: Acute myeloid leukaemia
     Dosage: 10 COURSES
  3. AZACITIDINE [Concomitant]
     Active Substance: AZACITIDINE
     Indication: Myelodysplastic syndrome
     Dosage: FOR 7 DAYS
     Route: 042
     Dates: start: 20210720, end: 20210726
  4. VORICONAZOLE [Concomitant]
     Active Substance: VORICONAZOLE
     Indication: Pneumonia fungal
     Route: 048
     Dates: start: 20210720

REACTIONS (5)
  - Enterocolitis [Recovered/Resolved]
  - Bone marrow failure [Unknown]
  - Pneumonia [Fatal]
  - Neutrophil count decreased [Not Recovered/Not Resolved]
  - Blast cells present [Unknown]

NARRATIVE: CASE EVENT DATE: 20210813
